FAERS Safety Report 15897814 (Version 2)
Quarter: 2019Q1

REPORT INFORMATION
  Report Type: Spontaneous
  Country: FR (occurrence: FR)
  Receive Date: 20190201
  Receipt Date: 20190208
  Transmission Date: 20190417
  Serious: Yes (Hospitalization, Other)
  Sender: FDA-Public Use
  Company Number: FR-ABBVIE-19K-056-2648261-00

PATIENT
  Age: 32 Year
  Sex: Male
  Weight: 72 kg

DRUGS (3)
  1. POSACONAZOLE [Concomitant]
     Active Substance: POSACONAZOLE
     Indication: PRODUCT USED FOR UNKNOWN INDICATION
     Route: 048
     Dates: start: 20181220
  2. VENCLYXTO [Suspect]
     Active Substance: VENETOCLAX
     Indication: ACUTE MYELOID LEUKAEMIA
     Route: 048
     Dates: start: 20181220, end: 20190122
  3. TAMIFLU [Suspect]
     Active Substance: OSELTAMIVIR PHOSPHATE
     Indication: INFLUENZA
     Route: 048
     Dates: start: 20190114, end: 20190122

REACTIONS (6)
  - Cardiac tamponade [Unknown]
  - Influenza like illness [Recovered/Resolved]
  - Dyspnoea [Unknown]
  - Asthenia [Unknown]
  - Pericardial effusion [Recovered/Resolved with Sequelae]
  - Acute myeloid leukaemia recurrent [Unknown]

NARRATIVE: CASE EVENT DATE: 20190110
